FAERS Safety Report 24576230 (Version 4)
Quarter: 2025Q3

REPORT INFORMATION
  Report Type: Spontaneous
  Country: US (occurrence: US)
  Receive Date: 20241104
  Receipt Date: 20250925
  Transmission Date: 20251020
  Serious: No
  Sender: ROCHE
  Company Number: US-ROCHE-10000119577

PATIENT
  Age: 32 Year
  Sex: Female

DRUGS (4)
  1. HEMLIBRA [Suspect]
     Active Substance: EMICIZUMAB-KXWH
     Indication: Factor VIII deficiency
     Dosage: STRENGTH: 300 MG/2ML
     Route: 058
     Dates: start: 202002
  2. HEMLIBRA [Suspect]
     Active Substance: EMICIZUMAB-KXWH
     Dosage: STRENGTH: 105 MG/0.7ML
     Route: 058
     Dates: start: 202002
  3. HEMLIBRA [Suspect]
     Active Substance: EMICIZUMAB-KXWH
     Dosage: STRENGTH: 150 MG/ML
     Route: 058
     Dates: start: 202002
  4. ADVATE [Concomitant]
     Active Substance: ANTIHEMOPHILIC FACTOR, HUMAN RECOMBINANT

REACTIONS (6)
  - Haemorrhage [Unknown]
  - Haemorrhage [Unknown]
  - Off label use [Unknown]
  - Back pain [Unknown]
  - Haemorrhage [Unknown]
  - Gingival bleeding [Unknown]

NARRATIVE: CASE EVENT DATE: 20250318
